FAERS Safety Report 9264135 (Version 1)
Quarter: 2013Q2

REPORT INFORMATION
  Report Type: Spontaneous
  Country: US (occurrence: US)
  Receive Date: 20130430
  Receipt Date: 20130430
  Transmission Date: 20140414
  Serious: No
  Sender: FDA-Public Use
  Company Number: US-ASTRAZENECA-2013SE27142

PATIENT
  Sex: Female

DRUGS (2)
  1. BRILINTA [Suspect]
     Indication: TRANSIENT ISCHAEMIC ATTACK
     Route: 048
  2. BRILINTA [Suspect]
     Indication: TRANSIENT ISCHAEMIC ATTACK
     Route: 048

REACTIONS (5)
  - Blood disorder [Unknown]
  - Contusion [Unknown]
  - Adverse event [Unknown]
  - Intentional drug misuse [Unknown]
  - Off label use [Unknown]
